FAERS Safety Report 6942179-3 (Version None)
Quarter: 2010Q3

REPORT INFORMATION
  Report Type: 
  Country: None (occurrence: None)
  Receive Date: 20100826
  Receipt Date: 20100726
  Transmission Date: 20110219
  Serious: No
  Sender: FDA-Public Use
  Company Number: US-BAYER-201018888BCC

PATIENT
  Age: 53 Year
  Sex: Female
  Weight: 113 kg

DRUGS (4)
  1. ALEVE (CAPLET) [Suspect]
     Indication: BONE PAIN
     Dosage: UNIT DOSE: 220 MG
     Route: 048
     Dates: start: 20090101
  2. ALEVE (CAPLET) [Suspect]
     Dosage: UNIT DOSE: 220 MG
     Route: 048
     Dates: start: 20100727
  3. ASPIRIN TAB [Suspect]
     Indication: NEURALGIA
     Dosage: UNIT DOSE: 325 MG
     Route: 048
  4. FLAX SEED [Concomitant]
     Route: 065

REACTIONS (2)
  - BONE PAIN [None]
  - NEURALGIA [None]
